FAERS Safety Report 9261605 (Version 1)
Quarter: 2013Q2

REPORT INFORMATION
  Report Type: Spontaneous
  Country: US (occurrence: US)
  Receive Date: 20130429
  Receipt Date: 20130429
  Transmission Date: 20140414
  Serious: Yes (Other)
  Sender: FDA-Public Use
  Company Number: US-PFIZER INC-2013128913

PATIENT
  Age: 38 Year
  Sex: Male
  Weight: 131.52 kg

DRUGS (3)
  1. GEODON [Suspect]
     Indication: IMPULSE-CONTROL DISORDER
     Dosage: 60 MG, 2X/DAY
     Route: 048
  2. GEODON [Suspect]
     Dosage: 40MG IN MORNING AND 60MG IN EVENING
     Route: 048
     Dates: start: 2013
  3. DEPAKOTE [Concomitant]
     Dosage: UNK

REACTIONS (5)
  - Gait disturbance [Not Recovered/Not Resolved]
  - Thyroid function test abnormal [Unknown]
  - Incontinence [Not Recovered/Not Resolved]
  - Drug intolerance [Not Recovered/Not Resolved]
  - Off label use [Unknown]
